FAERS Safety Report 6366520-8 (Version None)
Quarter: 2009Q3

REPORT INFORMATION
  Report Type: 
  Country: None (occurrence: None)
  Receive Date: 20090921
  Receipt Date: 20090914
  Transmission Date: 20100115
  Serious: Yes (Life-Threatening)
  Sender: FDA-Public Use
  Company Number: AU-BAYER-200932012GPV

PATIENT
  Age: 16 Year
  Sex: Male

DRUGS (1)
  1. REANDRON [Suspect]
     Indication: ANORCHISM
     Route: 030

REACTIONS (1)
  - ANAPHYLACTIC REACTION [None]
